FAERS Safety Report 6442839-7 (Version None)
Quarter: 2009Q4

REPORT INFORMATION
  Report Type: 
  Country: None (occurrence: None)
  Receive Date: 20091113
  Receipt Date: 20091027
  Transmission Date: 20100525
  Serious: No
  Sender: FDA-Public Use
  Company Number: DSU-2009-02395

PATIENT
  Sex: Female
  Weight: 70.7611 kg

DRUGS (12)
  1. WELCHOL [Suspect]
     Indication: HYPERLIPIDAEMIA
     Dosage: 3750 MG (1875 MG, BID), PER ORAL, ADMINISTRATION CONTINUED
     Route: 048
     Dates: start: 20090101
  2. FUROSEMIDE [Concomitant]
  3. SYNTHROID [Concomitant]
  4. TOPROL XL (METOPROLOL SUCCINATE) (METOPROLOL SUCCINATE) [Concomitant]
  5. PREMPRO (MEDROXYPROGESTERONE ACETATE, ESTROGENS CONJUGATED) (MEDROXYPR [Concomitant]
  6. CYMBALTA [Concomitant]
  7. STEROID (CORTICOSTEROIDS) (INJECTION) [Concomitant]
  8. MULTIVITAMIN [Concomitant]
  9. FISIH OIL (FISH OIL) (FISH OIL) [Concomitant]
  10. CALCIUM WITH VITAMIN D (ERGOCALCIFEROL, CALCIUM PHOSPHATE, CALCIUM SOD [Concomitant]
  11. IBUPROFEN [Concomitant]
  12. LORTAB (PARACETAMOL, HYDROCODONE BITARTRATE) (PARACETAMOL, HYDROCODONE [Concomitant]

REACTIONS (2)
  - DRUG INTOLERANCE [None]
  - SENSATION OF FOREIGN BODY [None]
